FAERS Safety Report 24432702 (Version 1)
Quarter: 2024Q4

REPORT INFORMATION
  Report Type: Spontaneous
  Country: NL (occurrence: NL)
  Receive Date: 20241014
  Receipt Date: 20241014
  Transmission Date: 20250115
  Serious: Yes (Other)
  Sender: CELLTRION
  Company Number: None

PATIENT

DRUGS (1)
  1. INFLIXIMAB [Suspect]
     Active Substance: INFLIXIMAB
     Indication: Cardiac sarcoidosis
     Dosage: 1 DF, EVERY 4 WEEKS
     Dates: start: 20230405

REACTIONS (4)
  - Pseudostroke [Unknown]
  - Cerebral disorder [Unknown]
  - Speech disorder [Unknown]
  - Intentional product use issue [Unknown]
